FAERS Safety Report 8128828-5 (Version None)
Quarter: 2012Q1

REPORT INFORMATION
  Report Type: 
  Country: None (occurrence: None)
  Receive Date: 20120210
  Receipt Date: 20110321
  Transmission Date: 20120608
  Serious: No
  Sender: FDA-Public Use
  Company Number: US-BRISTOL-MYERS SQUIBB COMPANY-15621956

PATIENT
  Age: 56 Year
  Sex: Female
  Weight: 78 kg

DRUGS (7)
  1. IBUPROFEN (ADVIL) [Concomitant]
  2. PLAQUENIL [Concomitant]
  3. ARAVA [Concomitant]
  4. FOLIC ACID [Concomitant]
  5. PREDNISONE TAB [Concomitant]
  6. METHOTREXATE [Concomitant]
  7. ORENCIA [Suspect]
     Indication: RHEUMATOID ARTHRITIS
     Dosage: SECOND INF:21MAR2011
     Route: 042
     Dates: start: 20110128

REACTIONS (3)
  - INFLUENZA [None]
  - FATIGUE [None]
  - BRONCHITIS [None]
